FAERS Safety Report 10028313 (Version 2)
Quarter: 2014Q1

REPORT INFORMATION
  Report Type: Report from Study
  Country: UG (occurrence: UG)
  Receive Date: 20140321
  Receipt Date: 20140321
  Transmission Date: 20141002
  Serious: Yes (Hospitalization, Other)
  Sender: FDA-Public Use
  Company Number: UG-ABBVIE-11P-165-0719057-00

PATIENT
  Sex: Female

DRUGS (7)
  1. ALUVIA TABLETS [Suspect]
     Indication: HIV INFECTION
     Route: 048
     Dates: start: 20100922, end: 20110312
  2. TENOFOVIR [Concomitant]
     Indication: HIV INFECTION
     Dates: start: 20100922, end: 20110312
  3. SEPTRIN [Concomitant]
     Indication: PRODUCT USED FOR UNKNOWN INDICATION
     Dates: start: 20040515, end: 20110312
  4. ORAL REHYDRATION SALTS [Concomitant]
     Indication: PRODUCT USED FOR UNKNOWN INDICATION
     Dates: start: 20110304, end: 20110307
  5. METRONIDAZOLE [Concomitant]
     Indication: PRODUCT USED FOR UNKNOWN INDICATION
     Dates: start: 20110304, end: 20110312
  6. COTRIMOXAZOLE [Concomitant]
     Indication: PRODUCT USED FOR UNKNOWN INDICATION
     Dates: start: 20100922
  7. LAMIVUDINE [Concomitant]
     Indication: HIV INFECTION
     Dates: start: 20100922, end: 20110312

REACTIONS (6)
  - Hepatitis [Recovered/Resolved]
  - Pyrexia [Recovered/Resolved]
  - Oral candidiasis [Recovered/Resolved]
  - Pneumococcal sepsis [Unknown]
  - Cerebral toxoplasmosis [Not Recovered/Not Resolved]
  - Bipolar I disorder [Not Recovered/Not Resolved]
